FAERS Safety Report 12895652 (Version 1)
Quarter: 2016Q4

REPORT INFORMATION
  Report Type: Spontaneous
  Country: FR (occurrence: FR)
  Receive Date: 20161031
  Receipt Date: 20161031
  Transmission Date: 20170207
  Serious: Yes (Death, Other)
  Sender: FDA-Public Use
  Company Number: PHHY2016FR145803

PATIENT
  Age: 56 Year
  Sex: Female

DRUGS (4)
  1. FILGRASTIM [Suspect]
     Active Substance: FILGRASTIM
     Indication: GLIOBLASTOMA
     Route: 065
  2. TEMOZOLOMIDE. [Suspect]
     Active Substance: TEMOZOLOMIDE
     Indication: GLIOBLASTOMA
     Dosage: UNK
     Route: 065
  3. IDARUBICIN [Suspect]
     Active Substance: IDARUBICIN
     Indication: GLIOBLASTOMA
     Dosage: 22 MG (OVER 30 MIN)
     Route: 013
  4. BEVACIZUMAB [Suspect]
     Active Substance: BEVACIZUMAB
     Indication: GLIOBLASTOMA
     Route: 065

REACTIONS (12)
  - Pupils unequal [Unknown]
  - Disease progression [Fatal]
  - Drug ineffective [Unknown]
  - Anaemia [Unknown]
  - Toxicity to various agents [Unknown]
  - Glioblastoma [Fatal]
  - Hemiparesis [Unknown]
  - Disease recurrence [Unknown]
  - Thrombocytopenia [Unknown]
  - Cognitive disorder [Unknown]
  - Leukopenia [Unknown]
  - Neutropenia [Unknown]

NARRATIVE: CASE EVENT DATE: 201111
